FAERS Safety Report 6817399-9 (Version None)
Quarter: 2010Q3

REPORT INFORMATION
  Report Type: 
  Country: None (occurrence: None)
  Receive Date: 20100706
  Receipt Date: 20100701
  Transmission Date: 20110219
  Serious: Yes (Hospitalization)
  Sender: FDA-Public Use
  Company Number: A0782981A

PATIENT
  Age: 52 Year
  Sex: Male

DRUGS (2)
  1. AVANDIA [Suspect]
     Dosage: 4MG PER DAY
     Route: 048
     Dates: start: 20000727, end: 20011211
  2. ROSIGLITAZONE MALEATE [Suspect]
     Dosage: 8MG PER DAY
     Route: 048
     Dates: start: 20011211, end: 20070419

REACTIONS (1)
  - CEREBROVASCULAR ACCIDENT [None]
